FAERS Safety Report 7677688-5 (Version None)
Quarter: 2011Q3

REPORT INFORMATION
  Report Type: 
  Country: None (occurrence: None)
  Receive Date: 20110811
  Receipt Date: 20110803
  Transmission Date: 20111222
  Serious: Yes (Hospitalization, Other)
  Sender: FDA-Public Use
  Company Number: PHHY2011HU61993

PATIENT
  Age: 75 Year
  Sex: Female

DRUGS (10)
  1. VITAMIN D [Concomitant]
     Dosage: UNK UKN, UNK
  2. NITRODERM [Concomitant]
     Dosage: 02 MG, UNK
  3. ZOLEDRONOC ACID [Suspect]
     Indication: OSTEOPOROSIS POSTMENOPAUSAL
     Dosage: 5 MG, UNK
     Route: 042
     Dates: start: 20110628
  4. TENAXUM [Concomitant]
     Dosage: 1 DF/DAY
  5. MILURIT [Concomitant]
     Dosage: 100 MG, QD
  6. KALDYUM [Concomitant]
     Dosage: UNK UKN, UNK
  7. PANTOPRAZOLE [Concomitant]
     Dosage: UNK UKN, UNK
  8. NALTREXONE HYDROCHLORIDE [Concomitant]
     Dosage: UNK UKN, UNK
  9. HUMA-FOLACID [Concomitant]
     Dosage: 6 DF/WEEK
  10. FUROSEMIDE [Concomitant]
     Dosage: UNK UKN, UNK

REACTIONS (17)
  - GLOMERULAR FILTRATION RATE DECREASED [None]
  - ANAEMIA [None]
  - PYREXIA [None]
  - MYALGIA [None]
  - AZOTAEMIA [None]
  - BLOOD CALCIUM DECREASED [None]
  - BACK PAIN [None]
  - ASTHENIA [None]
  - LEUKOCYTOSIS [None]
  - ARTHRALGIA [None]
  - BLOOD CREATININE INCREASED [None]
  - HAEMOGLOBIN DECREASED [None]
  - C-REACTIVE PROTEIN INCREASED [None]
  - HEADACHE [None]
  - URINARY TRACT INFECTION [None]
  - RED BLOOD CELL SEDIMENTATION RATE INCREASED [None]
  - RENAL FAILURE ACUTE [None]
